FAERS Safety Report 6751574-7 (Version None)
Quarter: 2010Q2

REPORT INFORMATION
  Report Type: 
  Country: None (occurrence: None)
  Receive Date: 20100602
  Receipt Date: 20100524
  Transmission Date: 20101027
  Serious: Yes (Other)
  Sender: FDA-Public Use
  Company Number: US-SANOFI-AVENTIS-2010SA029723

PATIENT
  Age: 77 Year
  Sex: Male

DRUGS (2)
  1. LANTUS [Suspect]
     Dosage: 15-18 UNITS DAILY
     Route: 058
  2. SOLOSTAR [Suspect]

REACTIONS (3)
  - INJECTION SITE HAEMATOMA [None]
  - MACULAR DEGENERATION [None]
  - VISUAL ACUITY REDUCED [None]
